FAERS Safety Report 17191131 (Version 1)
Quarter: 2019Q4

REPORT INFORMATION
  Report Type: Spontaneous
  Country: BE (occurrence: BE)
  Receive Date: 20191223
  Receipt Date: 20191223
  Transmission Date: 20200122
  Serious: Yes (Other)
  Sender: FDA-Public Use
  Company Number: BE-PFIZER INC-2019545375

PATIENT
  Sex: Female

DRUGS (1)
  1. ALPRAZOLAM. [Suspect]
     Active Substance: ALPRAZOLAM
     Dosage: 60 DF, 1X/DAY (ABOUT 60 PILLS OF 1 MG PER DAY, MULTIPLE PHYSICIANS, MULTIPLE PHARMACIES)

REACTIONS (1)
  - Drug abuse [Unknown]
